FAERS Safety Report 16986888 (Version 1)
Quarter: 2019Q4

REPORT INFORMATION
  Report Type: Spontaneous
  Country: FR (occurrence: FR)
  Receive Date: 20191102
  Receipt Date: 20191102
  Transmission Date: 20200122
  Serious: Yes (Hospitalization)
  Sender: FDA-Public Use
  Company Number: FR-TEVA-2019-FR-1129918

PATIENT
  Age: 51 Year
  Sex: Male

DRUGS (4)
  1. SERESTA 20 MG, COMPRIME [Concomitant]
     Active Substance: OXAZEPAM
     Indication: SCHIZOPHRENIA
     Dosage: 3 DOSAGE FORMS PER DAY
     Route: 048
     Dates: end: 20190812
  2. LOXAPAC 100 MG, COMPRIME PELLICULE [Suspect]
     Active Substance: LOXAPINE
     Indication: SCHIZOPHRENIA
     Dosage: 3 DOSAGE FORMS PER DAY
     Route: 048
     Dates: end: 20190812
  3. DEPAKOTE [Concomitant]
     Active Substance: DIVALPROEX SODIUM
     Indication: SCHIZOPHRENIA
     Dosage: 2 GRAM PER DAY
     Route: 048
     Dates: end: 20190812
  4. CLOZAPINE. [Suspect]
     Active Substance: CLOZAPINE
     Indication: SCHIZOPHRENIA
     Dosage: 900 MILLIGRAM PER DAY
     Route: 048
     Dates: end: 20190812

REACTIONS (2)
  - Subileus [Recovering/Resolving]
  - Megacolon [Recovering/Resolving]

NARRATIVE: CASE EVENT DATE: 20190812
